FAERS Safety Report 6751196-8 (Version None)
Quarter: 2010Q2

REPORT INFORMATION
  Report Type: 
  Country: None (occurrence: None)
  Receive Date: 20100602
  Receipt Date: 20100525
  Transmission Date: 20101027
  Serious: Yes (Hospitalization, Other)
  Sender: FDA-Public Use
  Company Number: US-JNJFOC-20100510029

PATIENT
  Sex: Female
  Weight: 83.46 kg

DRUGS (5)
  1. TOPAMAX [Suspect]
     Indication: TREMOR
     Route: 048
  2. TOPAMAX [Suspect]
     Route: 048
  3. UNSPECIFIED TOPIRAMATE [Suspect]
     Indication: TREMOR
     Route: 048
  4. EFFEXOR [Concomitant]
     Indication: ANXIETY
     Route: 048
  5. WARFARIN [Concomitant]
     Indication: THROMBOSIS
     Route: 048

REACTIONS (8)
  - BALANCE DISORDER [None]
  - DRUG INEFFECTIVE [None]
  - FEELING ABNORMAL [None]
  - GAIT DISTURBANCE [None]
  - HYPERPHAGIA [None]
  - HYPERTENSION [None]
  - SURGERY [None]
  - WEIGHT DECREASED [None]
